FAERS Safety Report 8022385-X (Version None)
Quarter: 2012Q1

REPORT INFORMATION
  Report Type: 
  Country: None (occurrence: None)
  Receive Date: 20120104
  Receipt Date: 20110510
  Transmission Date: 20120608
  Serious: No
  Sender: FDA-Public Use
  Company Number: US-MYLANLABS-2011S1009924

PATIENT

DRUGS (1)
  1. BALSALAZIDE DISODIUM [Suspect]

REACTIONS (2)
  - HEADACHE [None]
  - NAUSEA [None]
